FAERS Safety Report 14350824 (Version 1)
Quarter: 2018Q1

REPORT INFORMATION
  Report Type: Spontaneous
  Country: US (occurrence: US)
  Receive Date: 20180104
  Receipt Date: 20180104
  Transmission Date: 20180509
  Serious: No
  Sender: FDA-Public Use
  Company Number: US-DRREDDYS-USA/USA/17/0086727

PATIENT
  Age: 48 Year
  Sex: Female

DRUGS (1)
  1. NICOTINE 21 MG TRANSDERMAL PATCHES [Suspect]
     Active Substance: NICOTINE
     Indication: SMOKING CESSATION THERAPY
     Route: 061

REACTIONS (2)
  - Nicotine dependence [Not Recovered/Not Resolved]
  - Product storage error [None]
